FAERS Safety Report 23392668 (Version 1)
Quarter: 2024Q1

REPORT INFORMATION
  Report Type: Spontaneous
  Country: US (occurrence: US)
  Receive Date: 20240111
  Receipt Date: 20240111
  Transmission Date: 20240409
  Serious: No
  Sender: FDA-Public Use
  Company Number: US-REGENERON PHARMACEUTICALS, INC.-2023-088627

PATIENT
  Sex: Male

DRUGS (1)
  1. EYLEA [Suspect]
     Active Substance: AFLIBERCEPT
     Indication: Retinopathy of prematurity
     Dosage: UNKNOWN;ONCE, INTO EACH EYE (BOTH EYES) FORMULATION: PRE-FILLED SYRINGE: (UNKNOWN)
     Dates: start: 20230628, end: 20230628

REACTIONS (2)
  - Incorrect dosage administered [Unknown]
  - Incorrect product formulation administered [Unknown]

NARRATIVE: CASE EVENT DATE: 20230628
